FAERS Safety Report 4740219-3 (Version None)
Quarter: 2005Q3

REPORT INFORMATION
  Report Type: 
  Country: None (occurrence: None)
  Receive Date: 20050810
  Receipt Date: 20050228
  Transmission Date: 20060218
  Serious: No
  Sender: FDA-Public Use
  Company Number: US-GLAXOSMITHKLINE-A0547647A

PATIENT
  Sex: Male

DRUGS (2)
  1. PAXIL [Suspect]
     Indication: DEPRESSION
     Route: 048
  2. WELLBUTRIN XL [Suspect]
     Indication: DEPRESSION
     Route: 048

REACTIONS (3)
  - ANGER [None]
  - DEPRESSION [None]
  - SEXUAL DYSFUNCTION [None]
